FAERS Safety Report 21761772 (Version 1)
Quarter: 2022Q4

REPORT INFORMATION
  Report Type: Spontaneous
  Country: CN (occurrence: CN)
  Receive Date: 20221221
  Receipt Date: 20221221
  Transmission Date: 20230113
  Serious: Yes (Death, Life-Threatening, Other)
  Sender: FDA-Public Use
  Company Number: CN-AMGEN-CHNSP2022218650

PATIENT

DRUGS (16)
  1. FILGRASTIM [Suspect]
     Active Substance: FILGRASTIM
     Indication: Product used for unknown indication
     Dosage: 5 MICROGRAM/KILOGRAM, QD
     Route: 058
  2. FLUDARABINE [Concomitant]
     Active Substance: FLUDARABINE PHOSPHATE
     Indication: Product used for unknown indication
     Dosage: 45 MILLIGRAM/SQ. METER, QD
     Route: 040
  3. BUSULFAN [Concomitant]
     Active Substance: BUSULFAN
     Dosage: 3.2 MILLIGRAM/KILOGRAM, QD
     Route: 040
  4. CYCLOPHOSPHAMIDE [Concomitant]
     Active Substance: CYCLOPHOSPHAMIDE
     Dosage: 40 MILLIGRAM/KILOGRAM, QD
     Route: 040
  5. CYCLOSPORINE [Concomitant]
     Active Substance: CYCLOSPORINE
     Dosage: UNK, 6-10 MG/KG/DAY OR 0.1-0.3 MG/KG/DAY
     Route: 048
  6. TACROLIMUS [Concomitant]
     Active Substance: TACROLIMUS
     Dosage: UNK, UNK, 6-10 MG/KG/DAY OR 0.1-0.3 MG/KG/DAY
     Route: 048
  7. METHOTREXATE [Concomitant]
     Active Substance: METHOTREXATE
     Dosage: UNK
  8. MYCOPHENOLATE MOFETIL [Concomitant]
     Active Substance: MYCOPHENOLATE MOFETIL
     Dosage: UNK
  9. THYMOGLOBULINE [Concomitant]
     Active Substance: LAPINE T-LYMPHOCYTE IMMUNE GLOBULIN
     Dosage: 2.5 MILLIGRAM/KILOGRAM, QD
     Route: 040
  10. MEROPENEM [Concomitant]
     Active Substance: MEROPENEM
     Indication: Antibiotic prophylaxis
     Dosage: UNK
  11. VANCOMYCIN [Concomitant]
     Active Substance: VANCOMYCIN
     Indication: Antibiotic prophylaxis
     Dosage: UNK
  12. POSACONAZOLE [Concomitant]
     Active Substance: POSACONAZOLE
     Indication: Prophylaxis
     Dosage: UNK
  13. VORICONAZOLE [Concomitant]
     Active Substance: VORICONAZOLE
     Indication: Prophylaxis
     Dosage: UNK
  14. CASPOFUNGIN [Concomitant]
     Active Substance: CASPOFUNGIN
     Indication: Prophylaxis
     Dosage: UNK
  15. GANCICLOVIR [Concomitant]
     Active Substance: GANCICLOVIR
     Indication: Prophylaxis
     Dosage: UNK
  16. ACYCLOVIR [Concomitant]
     Active Substance: ACYCLOVIR
     Indication: Prophylaxis
     Dosage: UNK

REACTIONS (22)
  - Death [Fatal]
  - Central nervous system infection [Fatal]
  - Infection [Fatal]
  - Pneumonia bacterial [Fatal]
  - Transplantation complication [Fatal]
  - Obliterative bronchiolitis [Fatal]
  - Cerebral haemorrhage [Fatal]
  - Capillary leak syndrome [Fatal]
  - Acute graft versus host disease [Unknown]
  - Acute graft versus host disease in skin [Unknown]
  - Graft versus host disease in gastrointestinal tract [Unknown]
  - Acute graft versus host disease in liver [Unknown]
  - Cystitis haemorrhagic [Unknown]
  - BK virus infection [Unknown]
  - Transplant failure [Unknown]
  - Engraftment syndrome [Recovered/Resolved]
  - Cytomegalovirus viraemia [Unknown]
  - Epstein-Barr viraemia [Unknown]
  - Herpes virus infection [Unknown]
  - Encephalitis viral [Unknown]
  - Chronic graft versus host disease [Unknown]
  - Sepsis [Unknown]
